FAERS Safety Report 13928704 (Version 2)
Quarter: 2017Q3

REPORT INFORMATION
  Report Type: Spontaneous
  Country: CN (occurrence: CN)
  Receive Date: 20170901
  Receipt Date: 20170906
  Transmission Date: 20171127
  Serious: No
  Sender: FDA-Public Use
  Company Number: CN-009507513-1708CHN008814

PATIENT
  Age: 68 Year
  Sex: Female
  Weight: 46 kg

DRUGS (1)
  1. TIENAM [Suspect]
     Active Substance: CILASTATIN SODIUM\IMIPENEM
     Indication: ANTI-INFECTIVE THERAPY
     Dosage: 1 G, TID
     Route: 041
     Dates: start: 20170522, end: 20170530

REACTIONS (1)
  - Delirium [Recovering/Resolving]

NARRATIVE: CASE EVENT DATE: 20170529
